FAERS Safety Report 8617249-4 (Version None)
Quarter: 2012Q3

REPORT INFORMATION
  Report Type: 
  Country: None (occurrence: None)
  Receive Date: 20120823
  Receipt Date: 20120810
  Transmission Date: 20120928
  Serious: No
  Sender: FDA-Public Use
  Company Number: US-ASTRAZENECA-2012SE56729

PATIENT
  Sex: Female

DRUGS (3)
  1. ENTOCORT EC [Suspect]
     Indication: COLITIS MICROSCOPIC
     Route: 048
     Dates: start: 20100101, end: 20110101
  2. ENTOCORT EC [Suspect]
     Dosage: GENERIC
     Route: 048
     Dates: start: 20110101
  3. ENTOCORT EC [Suspect]
     Route: 048
     Dates: start: 20120701

REACTIONS (4)
  - FLATULENCE [None]
  - OFF LABEL USE [None]
  - NAUSEA [None]
  - ABDOMINAL DISTENSION [None]
